FAERS Safety Report 6903841-1 (Version None)
Quarter: 2010Q3

REPORT INFORMATION
  Report Type: 
  Country: None (occurrence: None)
  Receive Date: 20100804
  Receipt Date: 20090107
  Transmission Date: 20110219
  Serious: No
  Sender: FDA-Public Use
  Company Number: US-PFIZER INC-2008155086

PATIENT
  Sex: Female
  Weight: 94.3 kg

DRUGS (2)
  1. LYRICA [Suspect]
     Indication: TRIGEMINAL NEURALGIA
     Dosage: 100 MG, 3X/DAY
     Route: 048
     Dates: start: 20081205, end: 20081209
  2. CLONAZEPAM [Concomitant]
     Dosage: UNK

REACTIONS (3)
  - FEELING ABNORMAL [None]
  - PRURITUS [None]
  - RASH [None]
